FAERS Safety Report 19800154 (Version 1)
Quarter: 2021Q3

REPORT INFORMATION
  Report Type: Spontaneous
  Country: IE (occurrence: IE)
  Receive Date: 20210907
  Receipt Date: 20210907
  Transmission Date: 20211014
  Serious: Yes (Other)
  Sender: FDA-Public Use
  Company Number: IE-GLAXOSMITHKLINE-IE2021GSK185869

PATIENT
  Age: 13 Year
  Sex: Male

DRUGS (3)
  1. SERETIDE [Concomitant]
     Active Substance: FLUTICASONE PROPIONATE\SALMETEROL XINAFOATE
     Indication: ASTHMA
     Dosage: 100 UG, QD ONE PUFF TWICE A DAY
  2. FLUTICASONE PROPIONATE. [Suspect]
     Active Substance: FLUTICASONE PROPIONATE
     Indication: ASTHMA
     Dosage: 125 ?G TWO PUFFS TWICE A DAY
     Route: 055
  3. MONTELUKAST [Suspect]
     Active Substance: MONTELUKAST SODIUM
     Indication: ASTHMA
     Dosage: 5 MG, AT NIGHT

REACTIONS (6)
  - Weight increased [Recovered/Resolved]
  - Intracranial pressure increased [Recovered/Resolved]
  - Idiopathic intracranial hypertension [Recovered/Resolved]
  - Papilloedema [Recovered/Resolved]
  - CSF pressure increased [Recovered/Resolved]
  - Vision blurred [Recovered/Resolved]
